FAERS Safety Report 16019652 (Version 1)
Quarter: 2019Q1

REPORT INFORMATION
  Report Type: Spontaneous
  Country: US (occurrence: US)
  Receive Date: 20190228
  Receipt Date: 20190228
  Transmission Date: 20190418
  Serious: No
  Sender: FDA-Public Use
  Company Number: US-009507513-1902USA010349

PATIENT
  Age: 30 Year
  Sex: Female

DRUGS (6)
  1. COLISTIN [Concomitant]
     Active Substance: COLISTIN
  2. ZERBAXA [Suspect]
     Active Substance: CEFTOLOZANE SULFATE\TAZOBACTAM SODIUM
     Indication: CYSTIC FIBROSIS
     Dosage: 3 GRAM, Q8H
     Route: 042
     Dates: start: 20190215
  3. SODIUM CHLORIDE. [Suspect]
     Active Substance: SODIUM CHLORIDE
     Route: 042
  4. VANCOMYCIN [Concomitant]
     Active Substance: VANCOMYCIN
  5. NOXAFIL [Concomitant]
     Active Substance: POSACONAZOLE
     Dosage: 4 TABLETS ONCE DAILY
  6. DIPHENHYDRAMINE HYDROCHLORIDE. [Concomitant]
     Active Substance: DIPHENHYDRAMINE HYDROCHLORIDE
     Dosage: 50 MILLIGRAM
     Route: 042

REACTIONS (3)
  - Complication associated with device [Not Recovered/Not Resolved]
  - Product preparation error [Unknown]
  - Product quality issue [Unknown]

NARRATIVE: CASE EVENT DATE: 20190215
